FAERS Safety Report 18826468 (Version 2)
Quarter: 2021Q1

REPORT INFORMATION
  Report Type: Spontaneous
  Country: IT (occurrence: IT)
  Receive Date: 20210202
  Receipt Date: 20210215
  Transmission Date: 20210419
  Serious: Yes (Life-Threatening)
  Sender: FDA-Public Use
  Company Number: IT-TEVA-2021-IT-1875287

PATIENT
  Age: 48 Year
  Sex: Female
  Weight: 52 kg

DRUGS (1)
  1. CARBOPLATIN. [Suspect]
     Active Substance: CARBOPLATIN
     Indication: OVARIAN CANCER
     Dosage: 325 MILLIGRAM
     Route: 041
     Dates: start: 20201210, end: 20210114

REACTIONS (6)
  - Face oedema [Recovered/Resolved]
  - Oxygen saturation decreased [Recovered/Resolved]
  - Dyspnoea [Recovered/Resolved]
  - Shock [Recovered/Resolved]
  - Anal sphincter atony [Recovered/Resolved]
  - Skin oedema [Recovered/Resolved]

NARRATIVE: CASE EVENT DATE: 20210114
